FAERS Safety Report 15475506 (Version 1)
Quarter: 2018Q4

REPORT INFORMATION
  Report Type: Spontaneous
  Country: CN (occurrence: CN)
  Receive Date: 20181008
  Receipt Date: 20181008
  Transmission Date: 20190205
  Serious: Yes (Other)
  Sender: FDA-Public Use
  Company Number: CN-NAPPMUNDI-GBR-2018-0059927

PATIENT
  Age: 62 Year
  Sex: Male
  Weight: 70 kg

DRUGS (1)
  1. MS CONTIN [Suspect]
     Active Substance: MORPHINE SULFATE
     Indication: ANALGESIC THERAPY
     Dosage: 30 MG, BID
     Route: 048
     Dates: start: 20180804, end: 20180805

REACTIONS (1)
  - Coma [Recovering/Resolving]

NARRATIVE: CASE EVENT DATE: 20180805
